FAERS Safety Report 6190006-7 (Version None)
Quarter: 2009Q2

REPORT INFORMATION
  Report Type: 
  Country: None (occurrence: None)
  Receive Date: 20090514
  Receipt Date: 20090507
  Transmission Date: 20091009
  Serious: Yes (Other)
  Sender: FDA-Public Use
  Company Number: PHHY2009US17456

PATIENT
  Age: 59 Year
  Sex: Male

DRUGS (6)
  1. CYCLOSPORINE [Suspect]
     Indication: LUNG TRANSPLANT
     Dosage: UNK
  2. MYCOPHENOLATE MOFETIL [Suspect]
     Indication: LUNG TRANSPLANT
     Dosage: UNK
  3. PREDNISONE [Concomitant]
     Dosage: 40 MG
  4. VALACYCLOVIR HCL [Concomitant]
  5. SULFAMETHOXAZOLE AND TRIMETHOPRIM [Concomitant]
  6. ESOMEPRAZOLE MAGNESIUM [Concomitant]
     Dosage: UNK

REACTIONS (7)
  - BRONCHIAL SECRETION RETENTION [None]
  - BRONCHITIS [None]
  - BRONCHOPULMONARY ASPERGILLOSIS [None]
  - DYSPNOEA [None]
  - FORCED EXPIRATORY VOLUME DECREASED [None]
  - LUNG DISORDER [None]
  - OBSTRUCTIVE AIRWAYS DISORDER [None]
